FAERS Safety Report 4279829-9 (Version None)
Quarter: 2004Q1

REPORT INFORMATION
  Report Type: 
  Country: None (occurrence: None)
  Receive Date: 20040126
  Receipt Date: 20040112
  Transmission Date: 20041129
  Serious: Yes (Hospitalization)
  Sender: FDA-Public Use
  Company Number: 204153

PATIENT
  Age: 70 Year
  Sex: Female

DRUGS (8)
  1. HERCEPTIN [Suspect]
     Indication: BREAST CANCER
     Dosage: 120 MG, 1/WEEK, INTRAVENOUS
     Route: 042
     Dates: start: 20031219
  2. DOCETAXEL (DOCETAXEL) [Suspect]
     Dosage: 170 MG, Q3W, INTRAVENOUS
     Route: 042
     Dates: start: 20031219
  3. ZOCOR [Concomitant]
  4. LOSEC [Concomitant]
  5. CALTRATE (CALCIUM CARBONATE) [Concomitant]
  6. FOSAMAX (ALENDERONATE SODIUM) [Concomitant]
  7. SERC [Concomitant]
  8. OXAZEPAM [Concomitant]

REACTIONS (1)
  - FEBRILE NEUTROPENIA [None]
